FAERS Safety Report 26152914 (Version 1)
Quarter: 2025Q4

REPORT INFORMATION
  Report Type: Spontaneous
  Country: US (occurrence: US)
  Receive Date: 20251214
  Receipt Date: 20251214
  Transmission Date: 20260118
  Serious: Yes (Other)
  Sender: BRACCO
  Company Number: US-BRACCO-2025US08729

PATIENT
  Age: 49 Year
  Sex: Female

DRUGS (4)
  1. GASTROGRAFIN [Suspect]
     Active Substance: DIATRIZOATE MEGLUMINE\DIATRIZOATE SODIUM
     Indication: Diagnostic procedure
     Dosage: UNK, SINGLE
  2. ACYCLOVIR [Concomitant]
     Active Substance: ACYCLOVIR
     Dosage: UNK
  3. MEROPENEM [Concomitant]
     Active Substance: MEROPENEM
     Dosage: UNK
  4. LINEZOLID [Concomitant]
     Active Substance: LINEZOLID
     Dosage: UNK

REACTIONS (1)
  - Aspiration [Unknown]
